FAERS Safety Report 12994487 (Version 1)
Quarter: 2016Q4

REPORT INFORMATION
  Report Type: Spontaneous
  Country: PL (occurrence: PL)
  Receive Date: 20161202
  Receipt Date: 20161202
  Transmission Date: 20170207
  Serious: Yes (Death, Other)
  Sender: FDA-Public Use
  Company Number: PHHY2016PL164865

PATIENT
  Age: 31 Year
  Sex: Male

DRUGS (2)
  1. PAZOPANIB [Suspect]
     Active Substance: PAZOPANIB
     Dosage: 800 MG, QD
     Route: 065
  2. PAZOPANIB [Suspect]
     Active Substance: PAZOPANIB
     Indication: PRODUCT USED FOR UNKNOWN INDICATION
     Dosage: 800 MG, QD
     Route: 065
     Dates: start: 20140711

REACTIONS (8)
  - Hepatotoxicity [Unknown]
  - Neutropenia [Unknown]
  - Pyrexia [Unknown]
  - Rash [Unknown]
  - Hypertension [Unknown]
  - Thrombocytopenia [Unknown]
  - Blood bilirubin increased [Unknown]
  - Death [Fatal]

NARRATIVE: CASE EVENT DATE: 20150429
